FAERS Safety Report 9073752 (Version 1)
Quarter: 2013Q1

REPORT INFORMATION
  Report Type: Report from Study
  Country: US (occurrence: US)
  Receive Date: 20130129
  Receipt Date: 20130129
  Transmission Date: 20140127
  Serious: No
  Sender: FDA-Public Use
  Company Number: US-ABBOTT-12P-163-0918518-00

PATIENT
  Age: 41 Year
  Sex: Female

DRUGS (6)
  1. HUMIRA 40 MG/0.8 ML PEN [Suspect]
     Indication: CROHN^S DISEASE
     Dosage: 160MG ON 10 MAR 2012
     Dates: start: 20120310, end: 20120310
  2. HUMIRA 40 MG/0.8 ML PEN [Suspect]
     Dosage: 80MG ON 24 MAR 2012
     Dates: start: 20120324, end: 20120324
  3. HUMIRA 40 MG/0.8 ML PEN [Suspect]
  4. CORTICOSTEROIDS [Concomitant]
     Indication: CROHN^S DISEASE
     Dosage: 3 PILLS DAILY (DECREASING DOSE)
  5. IRON [Concomitant]
     Indication: BLOOD IRON DECREASED
  6. MULTIVITAMIN [Concomitant]
     Indication: PRODUCT USED FOR UNKNOWN INDICATION
     Dosage: DAILY

REACTIONS (3)
  - Incorrect dose administered [Recovered/Resolved]
  - Injection site pain [Recovered/Resolved]
  - Injection site pain [Recovered/Resolved]
